FAERS Safety Report 19382677 (Version 1)
Quarter: 2021Q2

REPORT INFORMATION
  Report Type: Spontaneous
  Country: US (occurrence: US)
  Receive Date: 20210607
  Receipt Date: 20210607
  Transmission Date: 20210717
  Serious: No
  Sender: FDA-Public Use
  Company Number: US-PFIZER INC-2021269755

PATIENT
  Age: 71 Year
  Sex: Female
  Weight: 98.88 kg

DRUGS (1)
  1. PREGABALIN. [Suspect]
     Active Substance: PREGABALIN
     Dosage: UNK

REACTIONS (5)
  - Abdominal discomfort [Unknown]
  - Drug ineffective [Unknown]
  - Feeling abnormal [Unknown]
  - Abdominal pain upper [Unknown]
  - Diarrhoea [Unknown]
